FAERS Safety Report 19264093 (Version 1)
Quarter: 2021Q2

REPORT INFORMATION
  Report Type: Spontaneous
  Country: US (occurrence: US)
  Receive Date: 20210517
  Receipt Date: 20210517
  Transmission Date: 20210717
  Serious: No
  Sender: FDA-Public Use
  Company Number: US-BAYER-2021-141954

PATIENT
  Age: 18 Year
  Sex: Female

DRUGS (1)
  1. MIRALAX [Suspect]
     Active Substance: POLYETHYLENE GLYCOL 3350
     Dosage: UNK,STIR AND DISSOLVE ONE PACKET OF POWDER (17G) IN ANY 4 TO 8 OUNCES OF BEVERAGE THEN DRINK
     Route: 048
     Dates: start: 20210513

REACTIONS (1)
  - Drug ineffective [Unknown]
